FAERS Safety Report 8187506-7 (Version None)
Quarter: 2012Q1

REPORT INFORMATION
  Report Type: 
  Country: None (occurrence: None)
  Receive Date: 20120306
  Receipt Date: 20120227
  Transmission Date: 20120608
  Serious: Yes (Hospitalization, Other)
  Sender: FDA-Public Use
  Company Number: GB-B.I. PHARMACEUTICALS,INC./RIDGEFIELD-2012-UK-00268UK

PATIENT
  Age: 77 Year
  Sex: Male

DRUGS (8)
  1. PRADAXA [Suspect]
     Indication: ATRIAL FIBRILLATION
     Dosage: 220 MG
     Route: 048
     Dates: start: 20120104
  2. PRADAXA [Suspect]
     Indication: ATRIAL THROMBOSIS
  3. LOSARTAN POTASSIUM [Concomitant]
     Dosage: 75 MG
  4. TANODOSSIN [Concomitant]
     Dosage: 400 MG
     Dates: start: 20090811
  5. ATORVASTATIN [Concomitant]
     Dosage: 20 MG
     Route: 048
     Dates: start: 20060320
  6. OMEPRAZOLE [Concomitant]
     Dosage: 40 MG
     Dates: start: 20110801
  7. MIRTAZAPINE [Concomitant]
     Dosage: 15 MG
     Dates: start: 20120209
  8. WARFARIN SODIUM [Concomitant]

REACTIONS (2)
  - TRANSIENT ISCHAEMIC ATTACK [None]
  - HEMIPARESIS [None]
